FAERS Safety Report 9633525 (Version 4)
Quarter: 2013Q4

REPORT INFORMATION
  Report Type: Spontaneous
  Country: IT (occurrence: None)
  Receive Date: 20131017
  Receipt Date: 20131227
  Transmission Date: 20140711
  Serious: Yes (Hospitalization)
  Sender: FDA-Public Use
  Company Number: AUR-APL-2013-08534

PATIENT
  Age: 81 Year
  Sex: Female

DRUGS (12)
  1. METFORMIN [Suspect]
     Indication: TYPE 2 DIABETES MELLITUS
     Dosage: 1 DOSAGE FORMS (1 DOSAGE FORMS, 1 IN 1 D), ORAL?
     Route: 048
     Dates: start: 20120101, end: 20130707
  2. ENALAPRIL [Suspect]
     Indication: HYPERTENSION
     Dosage: 1 DOSAGE FORMS (1 DOSAGE FORMS, 1 IN 1 D), ORAL
     Route: 048
     Dates: start: 20120101, end: 20130707
  3. LASITONE [Suspect]
     Indication: HYPERTENSION
     Dosage: 1 DOSAGE FORMS (1 DOSAGE FORMS, 1 IN 1 D), ORAL
     Route: 048
     Dates: start: 20120101, end: 20130707
  4. GLIBOMET [Suspect]
     Indication: TYPE 2 DIABETES MELLITUS
     Dosage: 1 DOSAGE FORMS (1 DOSAGE FORMS, 1 IN 1 D), ORAL
     Route: 048
     Dates: start: 20120101, end: 20130707
  5. CATAPRESAN TTS [Concomitant]
  6. MODALINA [Concomitant]
  7. AUGMENTIN [Concomitant]
  8. PLAVIX [Concomitant]
  9. ATORVASTATIN CALCIUM TRIHYDRATE [Concomitant]
  10. ALLOPURINOL [Concomitant]
  11. BISOPROLOL HEMIFUMARATE (BISOPROLOL FUMARATE) [Concomitant]
  12. ACETYLSALICYLIC ACID (ACETYLSALIVCYLIC ACID) [Concomitant]

REACTIONS (1)
  - Renal failure acute [None]
